FAERS Safety Report 5467568-8 (Version None)
Quarter: 2007Q3

REPORT INFORMATION
  Report Type: 
  Country: None (occurrence: None)
  Receive Date: 20070921
  Receipt Date: 20070911
  Transmission Date: 20080115
  Serious: Yes (Other)
  Sender: FDA-Public Use
  Company Number: 2007318306

PATIENT
  Age: 6 Year
  Sex: Female
  Weight: 22.6799 kg

DRUGS (1)
  1. LISTERINE AGENT COOL BLUE (UNSPECIFIED) (NO ACTIVE INGREDIENT) [Suspect]
     Indication: DENTAL DISORDER PROPHYLAXIS
     Dosage: UNSPECIFIED ABOUT 3 TIMES, ORAL
     Route: 048
     Dates: start: 20070201, end: 20070201

REACTIONS (7)
  - BACTERIAL INFECTION [None]
  - COUGH [None]
  - EAR INFECTION [None]
  - LISTLESS [None]
  - PALLOR [None]
  - VOMITING [None]
  - WEIGHT DECREASED [None]
